FAERS Safety Report 20356326 (Version 3)
Quarter: 2022Q2

REPORT INFORMATION
  Report Type: Spontaneous
  Country: US (occurrence: US)
  Receive Date: 20220120
  Receipt Date: 20220411
  Transmission Date: 20220721
  Serious: Yes (Hospitalization, Other)
  Sender: FDA-Public Use
  Company Number: US-VIIV HEALTHCARE LIMITED-US2022AMR010186

PATIENT
  Age: 49 Year
  Sex: Male
  Weight: 68.027 kg

DRUGS (8)
  1. CABENUVA [Suspect]
     Active Substance: CABOTEGRAVIR\RILPIVIRINE
     Indication: HIV infection
     Dosage: 1 DF, Z (MONTHLY), 600 AND 900 MG/3ML
     Route: 030
     Dates: start: 20210622, end: 20211204
  2. CABENUVA [Suspect]
     Active Substance: CABOTEGRAVIR\RILPIVIRINE
  3. CABENUVA [Suspect]
     Active Substance: CABOTEGRAVIR\RILPIVIRINE
  4. CIPRO [Suspect]
     Active Substance: CIPROFLOXACIN HYDROCHLORIDE
     Indication: Product used for unknown indication
     Dosage: 1 DF, BID
     Route: 048
  5. DELSTRIGO [Concomitant]
     Active Substance: DORAVIRINE\LAMIVUDINE\TENOFOVIR DISOPROXIL FUMARATE
     Indication: HIV infection
     Dosage: 1 DF, QD, 100-300-300 MG,
     Route: 048
  6. COVID-19 VACCINE [Concomitant]
     Indication: COVID-19 prophylaxis
     Dosage: UNK
  7. VOCABRIA [Concomitant]
     Active Substance: CABOTEGRAVIR SODIUM
     Indication: HIV infection
     Dosage: UNK
     Route: 048
  8. EDURANT [Concomitant]
     Active Substance: RILPIVIRINE HYDROCHLORIDE
     Indication: HIV infection
     Dosage: UNK
     Route: 048

REACTIONS (30)
  - Suicide attempt [Unknown]
  - Suicidal ideation [Recovered/Resolved]
  - Erectile dysfunction [Unknown]
  - Loss of consciousness [Unknown]
  - Acute myocardial infarction [Recovered/Resolved]
  - Depression [Recovered/Resolved]
  - Bradycardia [Unknown]
  - Insomnia [Recovered/Resolved]
  - Anger [Unknown]
  - Weight decreased [Unknown]
  - Personality change [Unknown]
  - Impulse-control disorder [Unknown]
  - Mental disorder [Unknown]
  - Cough [Unknown]
  - Productive cough [Unknown]
  - Night sweats [Unknown]
  - Anxiety [Unknown]
  - Nausea [Recovered/Resolved]
  - Chest discomfort [Unknown]
  - Condition aggravated [Unknown]
  - Depressed mood [Unknown]
  - Nasopharyngitis [Unknown]
  - Rhinorrhoea [Unknown]
  - Stress at work [Unknown]
  - Blood HIV RNA below assay limit [Unknown]
  - Chest pain [Recovered/Resolved]
  - Palpitations [Recovered/Resolved]
  - Diarrhoea [Recovered/Resolved]
  - Oropharyngeal pain [Unknown]
  - Ocular hyperaemia [Unknown]

NARRATIVE: CASE EVENT DATE: 20210701
